FAERS Safety Report 25363585 (Version 1)
Quarter: 2025Q2

REPORT INFORMATION
  Report Type: Spontaneous
  Country: GB (occurrence: GB)
  Receive Date: 20250527
  Receipt Date: 20250527
  Transmission Date: 20250717
  Serious: Yes (Disabling, Other)
  Sender: TEVA
  Company Number: GB-MHRA-WEBRADR-202505182036279290-ZYTJN

PATIENT
  Age: 32 Year
  Sex: Female
  Weight: 87 kg

DRUGS (1)
  1. MIRTAZAPINE [Suspect]
     Active Substance: MIRTAZAPINE
     Indication: Depression
     Route: 048
     Dates: start: 20250512

REACTIONS (6)
  - Back pain [Recovering/Resolving]
  - Musculoskeletal discomfort [Recovering/Resolving]
  - Thirst [Not Recovered/Not Resolved]
  - Limb discomfort [Recovered/Resolved]
  - Paraesthesia [Recovering/Resolving]
  - Muscle tightness [Recovering/Resolving]

NARRATIVE: CASE EVENT DATE: 20250513
